FAERS Safety Report 16866622 (Version 1)
Quarter: 2019Q3

REPORT INFORMATION
  Report Type: Spontaneous
  Country: US (occurrence: US)
  Receive Date: 20190930
  Receipt Date: 20190930
  Transmission Date: 20191005
  Serious: Yes (Other)
  Sender: FDA-Public Use
  Company Number: US-ABBVIE-19K-163-2936698-00

PATIENT
  Sex: Female
  Weight: 83.91 kg

DRUGS (6)
  1. PREDNISONE. [Concomitant]
     Active Substance: PREDNISONE
     Indication: INFLAMMATION
     Dosage: 1.25MG DAILY
     Dates: start: 2015
  2. TRAMADOL. [Concomitant]
     Active Substance: TRAMADOL
     Indication: PRODUCT USED FOR UNKNOWN INDICATION
     Dosage: 50MG TABLETS-7 AND 1/3 TABLETS EACH DAY
  3. DEPAKOTE [Suspect]
     Active Substance: DIVALPROEX SODIUM
     Indication: PRODUCT USED FOR UNKNOWN INDICATION
     Route: 065
     Dates: start: 2004
  4. LYRICA [Suspect]
     Active Substance: PREGABALIN
     Indication: NEURALGIA
     Dosage: MOUTH:300MG 3XDAY;THEN 600MG/DAY AFTER SURGERY; 100MG:2 IN AM,1 PM,2 BEDTIME;450MG DAILY
     Route: 065
     Dates: start: 2016
  5. LITHIUM. [Concomitant]
     Active Substance: LITHIUM
     Indication: PRODUCT USED FOR UNKNOWN INDICATION
  6. TOPIRAMATE. [Concomitant]
     Active Substance: TOPIRAMATE
     Indication: MIGRAINE
     Dosage: 75MG TAKEN DAILY
     Dates: start: 201907

REACTIONS (14)
  - Visual impairment [Not Recovered/Not Resolved]
  - Vision blurred [Not Recovered/Not Resolved]
  - Neuralgia [Unknown]
  - Drug hypersensitivity [Unknown]
  - Meniscus operation [Unknown]
  - Pain [Unknown]
  - Weight increased [Recovering/Resolving]
  - Surgery [Recovered/Resolved with Sequelae]
  - Memory impairment [Not Recovered/Not Resolved]
  - Anxiety [Recovered/Resolved]
  - Carpal tunnel syndrome [Unknown]
  - Gait disturbance [Unknown]
  - Peripheral nerve operation [Unknown]
  - Insomnia [Recovered/Resolved]

NARRATIVE: CASE EVENT DATE: 2016
